FAERS Safety Report 4746311-1 (Version None)
Quarter: 2005Q3

REPORT INFORMATION
  Report Type: 
  Country: None (occurrence: None)
  Receive Date: 20050815
  Receipt Date: 20050729
  Transmission Date: 20060218
  Serious: No
  Sender: FDA-Public Use
  Company Number: AU_050708696

PATIENT
  Age: 60 Year
  Sex: Male

DRUGS (7)
  1. HUMALOG MIX 75/25 [Suspect]
     Indication: DIABETES MELLITUS INSULIN-DEPENDENT
     Dosage: 39 U DAY
     Dates: start: 20050101
  2. PERINDOPRIL [Concomitant]
  3. PRAZOSIN HCL [Concomitant]
  4. GLICLAZIDE [Concomitant]
  5. FUROSEMIDE [Concomitant]
  6. NIFEDIPINE [Concomitant]
  7. METOPROLOL [Concomitant]

REACTIONS (4)
  - INCORRECT DOSE ADMINISTERED [None]
  - MEDICATION ERROR [None]
  - PHARMACEUTICAL PRODUCT COMPLAINT [None]
  - SYNCOPE [None]
